FAERS Safety Report 18271069 (Version 1)
Quarter: 2020Q3

REPORT INFORMATION
  Report Type: Spontaneous
  Country: US (occurrence: US)
  Receive Date: 20200916
  Receipt Date: 20200916
  Transmission Date: 20201103
  Serious: No
  Sender: FDA-Public Use
  Company Number: US-TEVA-2020-US-1828431

PATIENT
  Age: 66 Year
  Sex: Male
  Weight: 95.25 kg

DRUGS (13)
  1. METHOTREXATE (METHOTREXATE SODIUM) [Suspect]
     Active Substance: METHOTREXATE SODIUM
     Indication: PSORIATIC ARTHROPATHY
     Dosage: 2.5MG 8 TABLETS BY MOUTH PER WEEK ON FRIDAY
     Route: 048
     Dates: start: 2019
  2. INSULIN [Concomitant]
     Active Substance: INSULIN NOS
     Indication: DIABETES MELLITUS
     Dosage: VIA PUMP BASAL RATE 135UNITS/DAY AND BOLUS RATE DEPENDS ON NUMBER OF CARS CONSUMED
  3. METOPROLOL SUCCINATE ER [Concomitant]
     Active Substance: METOPROLOL SUCCINATE
     Dosage: 50MG 1 TABLET BY MOUTH DAILY
     Route: 048
  4. OTEZLA [Suspect]
     Active Substance: APREMILAST
     Indication: PSORIATIC ARTHROPATHY
     Dosage: 30MG 1 TABLET BY MOUTH TWICE A DAY
     Route: 048
     Dates: start: 201909, end: 20200814
  5. HUMALOG [Concomitant]
     Active Substance: INSULIN LISPRO
     Indication: DIABETES MELLITUS
     Dosage: VIA PUMG 135UNITS PER DAY BASAL BOLUS BASED ON NUMBER OF CARBS CONSUMED
  6. RHEUMATE [Concomitant]
     Active Substance: LEVOMEFOLIC ACID\METHYLCOBALAMIN\TURMERIC
     Dosage: COMBINATION OF FOLATE 1MG, METHYLCOBALAMIN B12 1MG, AND CURCUMINOD TURMERONE COMPLEX.
  7. LISINOPRIL. [Concomitant]
     Active Substance: LISINOPRIL
     Indication: BLOOD PRESSURE MEASUREMENT
     Dosage: 20MG 1 TABLET BY MOUTH DAILY
     Route: 048
  8. LEVOTHYROXINE. [Concomitant]
     Active Substance: LEVOTHYROXINE
     Dosage: 0.137MG 1 TABLET BY MOUTH DAILY
     Route: 048
  9. FENOFIBRATE. [Concomitant]
     Active Substance: FENOFIBRATE
     Indication: BLOOD CHOLESTEROL INCREASED
     Dosage: 160MG 1 TABLET BY MOUTH DAILY
     Route: 048
  10. METFORMIN [Concomitant]
     Active Substance: METFORMIN HYDROCHLORIDE
     Indication: DIABETES MELLITUS
     Dosage: 1000MG 1 TABLET BY MOUTH TWICE A DAY
     Route: 048
  11. ROSUVASTATIN. [Concomitant]
     Active Substance: ROSUVASTATIN
     Indication: BLOOD CHOLESTEROL
     Dosage: 10MG 1 TABLET BY MOUTH AT NIGHT TIME
     Route: 048
     Dates: start: 202006
  12. ROPINIROLE. [Concomitant]
     Active Substance: ROPINIROLE
     Indication: RESTLESS LEGS SYNDROME
     Dosage: 1MG 1 TABLET BY MOUTH DAILY
     Route: 048
  13. BYDUREON BCISE [Concomitant]
     Active Substance: EXENATIDE
     Indication: DIABETES MELLITUS
     Dosage: 2MG INJECTABLE 1 TIME WEEKLY

REACTIONS (5)
  - Fine motor skill dysfunction [Unknown]
  - Arthralgia [Unknown]
  - Gait disturbance [Unknown]
  - Pain [Unknown]
  - Pain in extremity [Unknown]
